FAERS Safety Report 6577090-3 (Version None)
Quarter: 2010Q1

REPORT INFORMATION
  Report Type: 
  Country: None (occurrence: None)
  Receive Date: 20100210
  Receipt Date: 20100201
  Transmission Date: 20100710
  Serious: Yes (Hospitalization)
  Sender: FDA-Public Use
  Company Number: DE-NOVOPROD-303810

PATIENT
  Age: 70 Year
  Sex: Female
  Weight: 45 kg

DRUGS (15)
  1. NOVONORM [Interacting]
     Indication: TYPE 2 DIABETES MELLITUS
     Dosage: UNK
     Route: 048
     Dates: start: 20070101
  2. FENTANYL-100 [Suspect]
     Dosage: UNK
     Route: 062
     Dates: start: 20090601, end: 20090727
  3. DREISAVIT                          /00844801/ [Concomitant]
     Dosage: UNK
     Route: 048
     Dates: start: 20050101, end: 20090726
  4. FOSRENOL [Concomitant]
     Dosage: UNK
     Route: 048
     Dates: start: 20070601
  5. DIGITOXIN [Concomitant]
     Dosage: UNK
     Route: 048
     Dates: start: 20070601
  6. MCP                                /00041901/ [Concomitant]
     Dosage: UNK
     Route: 048
     Dates: start: 20050101, end: 20090731
  7. ASPIRIN [Concomitant]
     Dosage: UNK
     Route: 048
     Dates: start: 20050101
  8. METAMIZOLE [Concomitant]
     Dosage: UNK
     Route: 048
     Dates: start: 20090601
  9. RESTEX [Interacting]
     Dosage: UNK
     Dates: start: 20060101
  10. CARVEDILOL [Interacting]
     Dosage: UNK
     Route: 048
     Dates: start: 20060101
  11. BLOPRESS [Interacting]
     Dosage: UNK
     Route: 048
     Dates: start: 20070101
  12. OMEPRAZOL                          /00661201/ [Interacting]
     Dosage: UNK
     Route: 048
     Dates: start: 20050101
  13. MIMPARA                            /01735301/ [Interacting]
     Dosage: UNK
     Dates: start: 20060101
  14. SIMVASTATIN [Interacting]
     Dosage: UNK
     Route: 048
     Dates: start: 20050101
  15. ACTONEL [Interacting]
     Dosage: UNK
     Route: 048
     Dates: start: 20080101

REACTIONS (6)
  - DIALYSIS [None]
  - DISORIENTATION [None]
  - LOSS OF CONSCIOUSNESS [None]
  - OVERDOSE [None]
  - SOMNOLENCE [None]
  - TRANSAMINASES INCREASED [None]
